FAERS Safety Report 6044414-5 (Version None)
Quarter: 2009Q1

REPORT INFORMATION
  Report Type: 
  Country: None (occurrence: None)
  Receive Date: 20090115
  Receipt Date: 20090115
  Transmission Date: 20090719
  Serious: Yes (Hospitalization)
  Sender: FDA-Public Use
  Company Number: None

PATIENT
  Sex: Male
  Weight: 16.5 kg

DRUGS (8)
  1. CYCLOPHOSPHAMIDE [Suspect]
     Dosage: 1050 MG
     Dates: end: 20081118
  2. CYTARABINE [Suspect]
     Dosage: 90 MG
     Dates: end: 20081119
  3. DOXORUBICIN HYDROCHLORIDE [Suspect]
     Dosage: 42 MG
     Dates: end: 20081115
  4. HYDROCORTISONE [Suspect]
     Dosage: 45 MG
     Dates: end: 20081119
  5. LEUCOVORIN CALCIUM [Suspect]
     Dosage: 90 MG
     Dates: end: 20081117
  6. METHOTREXATE [Suspect]
     Dosage: 5645 MG
     Dates: end: 20081119
  7. RITUXIMAB (MOAB C2B8 ANTI CD20, CHIMERIC) [Suspect]
     Dosage: 524 MG
     Dates: end: 20081114
  8. VINCRISTINE SULFATE [Suspect]
     Dosage: 1.4 MG
     Dates: end: 20081114

REACTIONS (3)
  - NEUTROPENIA [None]
  - PYREXIA [None]
  - STOMATITIS [None]
